FAERS Safety Report 9651199 (Version 1)
Quarter: 2013Q4

REPORT INFORMATION
  Report Type: Spontaneous
  Country: US (occurrence: US)
  Receive Date: 20131029
  Receipt Date: 20131029
  Transmission Date: 20140711
  Serious: No
  Sender: FDA-Public Use
  Company Number: US-BIOGENIDEC-2013BI070533

PATIENT
  Age: 52 Year
  Sex: Female

DRUGS (4)
  1. TECFIDERA [Suspect]
     Indication: MULTIPLE SCLEROSIS
     Route: 048
     Dates: end: 20130708
  2. LOSARTAN [Concomitant]
  3. LOW DOSE ASPIRIN [Concomitant]
  4. INDAPAMIDE [Concomitant]

REACTIONS (2)
  - Pharyngeal oedema [Unknown]
  - Chest pain [Not Recovered/Not Resolved]
